FAERS Safety Report 13301243 (Version 4)
Quarter: 2017Q2

REPORT INFORMATION
  Report Type: Spontaneous
  Country: US (occurrence: US)
  Receive Date: 20170307
  Receipt Date: 20170606
  Transmission Date: 20170830
  Serious: No
  Sender: FDA-Public Use
  Company Number: US-PFIZER INC-2017090851

PATIENT
  Age: 65 Year
  Sex: Female

DRUGS (3)
  1. IBRANCE [Suspect]
     Active Substance: PALBOCICLIB
     Dosage: 100 MG, UNK
     Dates: start: 20170227, end: 20170312
  2. IBRANCE [Suspect]
     Active Substance: PALBOCICLIB
     Dosage: UNK, 75 (UNIT NOT REPORTED)
     Dates: start: 201702
  3. FASLODEX [Suspect]
     Active Substance: FULVESTRANT
     Dosage: UNK

REACTIONS (9)
  - Arthralgia [Unknown]
  - Vertigo [Unknown]
  - Groin pain [Unknown]
  - Nausea [Unknown]
  - Gait disturbance [Unknown]
  - White blood cell count decreased [Unknown]
  - Fatigue [Unknown]
  - Depression [Unknown]
  - Malaise [Unknown]
